FAERS Safety Report 8390219-X (Version None)
Quarter: 2012Q2

REPORT INFORMATION
  Report Type: 
  Country: None (occurrence: None)
  Receive Date: 20120529
  Receipt Date: 20120523
  Transmission Date: 20120825
  Serious: Yes (Other)
  Sender: FDA-Public Use
  Company Number: US-PFIZER INC-2012125238

PATIENT
  Sex: Male
  Weight: 24 kg

DRUGS (2)
  1. VYVANSE [Concomitant]
     Dosage: 30 MG, UNK
  2. GENOTROPIN [Suspect]
     Indication: PRADER-WILLI SYNDROME
     Dosage: 0.9 MG, 1X/DAY
     Dates: start: 20051001

REACTIONS (2)
  - HERNIA CONGENITAL [None]
  - INCORRECT DOSE ADMINISTERED [None]
